FAERS Safety Report 5837065-6 (Version None)
Quarter: 2008Q3

REPORT INFORMATION
  Report Type: 
  Country: None (occurrence: None)
  Receive Date: 20080807
  Receipt Date: 20070711
  Transmission Date: 20090109
  Serious: No
  Sender: FDA-Public Use
  Company Number: A0662769A

PATIENT
  Age: 69 Year
  Sex: Female

DRUGS (3)
  1. TAGAMET HB 200 [Suspect]
  2. BENADRYL [Concomitant]
  3. CLARITIN [Concomitant]

REACTIONS (4)
  - DIZZINESS [None]
  - DYSPEPSIA [None]
  - NAUSEA [None]
  - VOMITING [None]
